FAERS Safety Report 9538238 (Version 1)
Quarter: 2013Q3

REPORT INFORMATION
  Report Type: Spontaneous
  Country: US (occurrence: US)
  Receive Date: 20130920
  Receipt Date: 20130920
  Transmission Date: 20140515
  Serious: Yes (Other)
  Sender: FDA-Public Use
  Company Number: US-BIOGENIDEC-2013BI087235

PATIENT
  Sex: Female

DRUGS (1)
  1. TECFIDERA [Suspect]
     Indication: MULTIPLE SCLEROSIS
     Route: 048
     Dates: start: 20130401

REACTIONS (7)
  - Tachycardia [Unknown]
  - Flushing [Recovered/Resolved]
  - Lymphopenia [Unknown]
  - Constipation [Unknown]
  - Alopecia [Unknown]
  - Rash [Recovered/Resolved]
  - Prescribed underdose [Not Recovered/Not Resolved]
